FAERS Safety Report 7476681-5 (Version None)
Quarter: 2011Q2

REPORT INFORMATION
  Report Type: 
  Country: None (occurrence: None)
  Receive Date: 20110511
  Receipt Date: 20110511
  Transmission Date: 20111010
  Serious: Yes (Life-Threatening, Hospitalization)
  Sender: FDA-Public Use
  Company Number: None

PATIENT
  Age: 9 Year
  Sex: Male
  Weight: 27.7 kg

DRUGS (2)
  1. ZOLOFT [Suspect]
     Indication: ATTENTION DEFICIT/HYPERACTIVITY DISORDER
     Dosage: 25 MG 1/DAY ORAL
     Route: 048
     Dates: start: 20110404, end: 20110415
  2. ZOLOFT [Suspect]
     Indication: OPPOSITIONAL DEFIANT DISORDER
     Dosage: 25 MG 1/DAY ORAL
     Route: 048
     Dates: start: 20110404, end: 20110415

REACTIONS (6)
  - THEFT [None]
  - AGGRESSION [None]
  - AGITATION [None]
  - ABNORMAL BEHAVIOUR [None]
  - HYPOMANIA [None]
  - SUICIDAL IDEATION [None]
